FAERS Safety Report 9542260 (Version 2)
Quarter: 2013Q4

REPORT INFORMATION
  Report Type: Spontaneous
  Country: GB (occurrence: GB)
  Receive Date: 20130923
  Receipt Date: 20131009
  Transmission Date: 20140711
  Serious: Yes (Disabling)
  Sender: FDA-Public Use
  Company Number: GB-PFIZER INC-2013269425

PATIENT
  Age: 37 Year
  Sex: Female
  Weight: 92.07 kg

DRUGS (2)
  1. CHAMPIX [Suspect]
     Indication: SMOKING CESSATION THERAPY
     Dosage: UNK
     Route: 048
     Dates: start: 200906, end: 200908
  2. SALBUTAMOL SULFATE [Concomitant]
     Dosage: UNK

REACTIONS (7)
  - Personality change [Not Recovered/Not Resolved]
  - Malaise [Unknown]
  - Weight increased [Unknown]
  - Cough [Unknown]
  - Headache [Unknown]
  - Disturbance in attention [Unknown]
  - Decreased interest [Unknown]
